FAERS Safety Report 20784329 (Version 1)
Quarter: 2022Q2

REPORT INFORMATION
  Report Type: Spontaneous
  Country: AT (occurrence: AT)
  Receive Date: 20220504
  Receipt Date: 20220504
  Transmission Date: 20220720
  Serious: Yes (Other)
  Sender: FDA-Public Use
  Company Number: AT-AMGEN-AUTSP2022073551

PATIENT
  Age: 58 Year
  Sex: Male

DRUGS (8)
  1. CARFILZOMIB [Suspect]
     Active Substance: CARFILZOMIB
     Indication: Plasma cell myeloma
     Route: 065
  2. POMALIDOMIDE [Concomitant]
     Active Substance: POMALIDOMIDE
     Indication: Prophylaxis
     Dosage: 2 MILLIGRAM
     Route: 065
     Dates: start: 201712
  3. DEXAMETHASONE [Concomitant]
     Active Substance: DEXAMETHASONE
     Indication: Prophylaxis
     Route: 065
  4. RITUXIMAB [Concomitant]
     Active Substance: RITUXIMAB
     Indication: Prophylaxis
     Route: 065
  5. LENALIDOMIDE [Concomitant]
     Active Substance: LENALIDOMIDE
     Indication: Prophylaxis
     Route: 065
  6. COMIRNATY [Concomitant]
     Active Substance: TOZINAMERAN
     Indication: COVID-19 immunisation
     Dosage: UNK, NEXT DOSE ON 03/FEB/2021
     Route: 065
     Dates: start: 20210111
  7. VAXZEVRIA [Concomitant]
     Active Substance: AZD-1222
     Indication: COVID-19 immunisation
     Dosage: UNK, NEXT DOSE ON 02/JUL/2021
     Route: 065
     Dates: start: 20210505
  8. BORTEZOMIB [Concomitant]
     Active Substance: BORTEZOMIB
     Indication: Prophylaxis
     Route: 065

REACTIONS (4)
  - Hypogammaglobulinaemia [Unknown]
  - Neutropenia [Unknown]
  - Lymphopenia [Unknown]
  - Inhibitory drug interaction [Unknown]
